FAERS Safety Report 5118074-1 (Version None)
Quarter: 2006Q4

REPORT INFORMATION
  Report Type: 
  Country: None (occurrence: None)
  Receive Date: 20061001
  Receipt Date: 20040908
  Transmission Date: 20070319
  Serious: Yes (Hospitalization)
  Sender: FDA-Public Use
  Company Number: CH-ABBOTT-04P-151-0272781-00

PATIENT
  Sex: Male

DRUGS (21)
  1. RITONAVIR SOFT GELATIN CAPSULES [Suspect]
     Indication: HIV INFECTION
     Route: 048
     Dates: start: 20040618, end: 20040828
  2. TIPRANAVIR [Concomitant]
     Indication: HIV INFECTION
     Route: 048
     Dates: start: 20040618, end: 20040828
  3. KALETRA [Concomitant]
     Indication: HIV INFECTION
     Dosage: LOPINAVIR 133.3 MG, RITONAVIR 33.3 MG
     Route: 048
     Dates: start: 20040618, end: 20040628
  4. VIREAD [Concomitant]
     Indication: HIV INFECTION
     Route: 048
     Dates: start: 20040618, end: 20040828
  5. FUZEON [Concomitant]
     Indication: HIV INFECTION
     Route: 058
     Dates: start: 20040618, end: 20040901
  6. DIDANOSINE [Concomitant]
     Indication: HIV INFECTION
     Route: 048
     Dates: start: 20031017, end: 20040828
  7. ASASANTIN [Concomitant]
     Indication: CEREBROVASCULAR ACCIDENT PROPHYLAXIS
     Route: 048
     Dates: start: 20040301, end: 20040828
  8. BACTRIM [Concomitant]
     Indication: PROPHYLAXIS
     Dosage: TRIMETHOPRIM 160 MG, SULFAMETHOXAZOL 800 MG
     Dates: start: 19950101, end: 20040828
  9. AZITHROMYCIN [Concomitant]
     Indication: PROPHYLAXIS
     Route: 048
     Dates: start: 19990104, end: 20040828
  10. INSULIN [Concomitant]
     Indication: DRUG USE FOR UNKNOWN INDICATION
     Route: 058
     Dates: start: 20040906, end: 20040928
  11. ZOVIRAX [Concomitant]
     Indication: HERPES ZOSTER
     Route: 042
     Dates: start: 20040924, end: 20040925
  12. ZOVIRAX [Concomitant]
     Route: 042
     Dates: start: 20041001, end: 20041002
  13. ZOVIRAX [Concomitant]
     Route: 042
     Dates: start: 20041012, end: 20041014
  14. ZOVIRAX CREME [Concomitant]
     Indication: HERPES SIMPLEX
     Dates: start: 20040920, end: 20040929
  15. PREDNISONE [Concomitant]
     Indication: DRUG USE FOR UNKNOWN INDICATION
     Dates: start: 20040828, end: 20041007
  16. VALACYCLOVIR HCL [Concomitant]
     Indication: HERPES ZOSTER
     Route: 042
     Dates: start: 20040828, end: 20041003
  17. MORPHINE [Concomitant]
     Indication: PAIN PROPHYLAXIS
     Dosage: STRENGTH 0.5/1.2 MG
     Route: 042
     Dates: start: 20040828, end: 20041014
  18. ACYCLOVIR [Concomitant]
     Indication: HERPES ZOSTER
     Route: 042
     Dates: start: 20040924, end: 20040924
  19. ACYCLOVIR [Concomitant]
     Route: 042
     Dates: start: 20040925, end: 20040930
  20. ACYCLOVIR [Concomitant]
     Route: 042
     Dates: start: 20041001, end: 20041002
  21. AMPRENAVIR [Concomitant]
     Indication: HIV INFECTION
     Dates: start: 20031017, end: 20040613

REACTIONS (5)
  - ASTHENIA [None]
  - LIVER FUNCTION TEST ABNORMAL [None]
  - NAUSEA [None]
  - PYREXIA [None]
  - VOMITING [None]
